FAERS Safety Report 20939175 (Version 1)
Quarter: 2022Q2

REPORT INFORMATION
  Report Type: Spontaneous
  Country: JP (occurrence: JP)
  Receive Date: 20220609
  Receipt Date: 20220609
  Transmission Date: 20220721
  Serious: Yes (Death, Hospitalization)
  Sender: FDA-Public Use
  Company Number: JP-ELI_LILLY_AND_COMPANY-JP202206003468

PATIENT
  Age: 70 Year
  Sex: Male

DRUGS (3)
  1. CYRAMZA [Suspect]
     Active Substance: RAMUCIRUMAB
     Indication: Lung squamous cell carcinoma recurrent
     Dosage: 10 MG/KG, OTHER
     Route: 041
  2. DOCETAXEL [Suspect]
     Active Substance: DOCETAXEL
     Indication: Lung squamous cell carcinoma recurrent
     Dosage: 60 MG/M2, OTHER
     Route: 041
  3. NIVOLUMAB [Suspect]
     Active Substance: NIVOLUMAB
     Indication: Lung squamous cell carcinoma recurrent
     Route: 065

REACTIONS (1)
  - Pulmonary toxicity [Fatal]
